FAERS Safety Report 15005263 (Version 1)
Quarter: 2018Q2

REPORT INFORMATION
  Report Type: Spontaneous
  Country: IE (occurrence: IE)
  Receive Date: 20180613
  Receipt Date: 20180613
  Transmission Date: 20180711
  Serious: Yes (Life-Threatening, Hospitalization, Other)
  Sender: FDA-Public Use
  Company Number: IE-ASTRAZENECA-2018SE73951

PATIENT
  Age: 44 Year
  Sex: Female
  Weight: 67 kg

DRUGS (10)
  1. CARBIMAZOLE [Concomitant]
     Active Substance: CARBIMAZOLE
     Dosage: 5.0MG UNKNOWN
  2. QUETIAPINE. [Suspect]
     Active Substance: QUETIAPINE
     Indication: SCHIZOPHRENIA
     Route: 048
  3. VENLAFAXINE [Suspect]
     Active Substance: VENLAFAXINE HYDROCHLORIDE
     Indication: SCHIZOPHRENIA
     Route: 048
  4. LITHIUM. [Suspect]
     Active Substance: LITHIUM
     Indication: SCHIZOPHRENIA
     Route: 065
  5. DOXYCYCLINE. [Concomitant]
     Active Substance: DOXYCYCLINE
     Dosage: 100.0MG UNKNOWN
  6. CENTYL K [Concomitant]
     Active Substance: BENDROFLUMETHIAZIDE\POTASSIUM CHLORIDE
     Dosage: 1, 2.5MG/573 MG
  7. PARACETAMOL [Suspect]
     Active Substance: ACETAMINOPHEN
     Indication: PAIN
     Route: 048
  8. LEVOTHYROXINE. [Concomitant]
     Active Substance: LEVOTHYROXINE
     Dosage: 100.0UG/INHAL UNKNOWN
  9. AMISULPRIDE [Concomitant]
     Active Substance: AMISULPRIDE
     Dosage: 100.0MG UNKNOWN
  10. FLUPENTIXOL [Concomitant]
     Active Substance: FLUPENTIXOL
     Dosage: 0.5MG UNKNOWN

REACTIONS (2)
  - Intentional overdose [Not Recovered/Not Resolved]
  - Hepatic failure [Not Recovered/Not Resolved]

NARRATIVE: CASE EVENT DATE: 20180405
